FAERS Safety Report 24560694 (Version 3)
Quarter: 2024Q4

REPORT INFORMATION
  Report Type: Spontaneous
  Country: US (occurrence: US)
  Receive Date: 20241029
  Receipt Date: 20241226
  Transmission Date: 20250115
  Serious: No
  Sender: PFIZER
  Company Number: US-PFIZER INC-202400280026

PATIENT
  Age: 82 Year
  Sex: Male

DRUGS (1)
  1. SOMATROPIN [Suspect]
     Active Substance: SOMATROPIN
     Indication: Empty sella syndrome
     Dosage: 0.4 MG ONCE DAILY
     Route: 058
     Dates: start: 20200205

REACTIONS (1)
  - Device leakage [Unknown]

NARRATIVE: CASE EVENT DATE: 20240915
